FAERS Safety Report 14964961 (Version 1)
Quarter: 2018Q2

REPORT INFORMATION
  Report Type: Spontaneous
  Country: US (occurrence: US)
  Receive Date: 20180601
  Receipt Date: 20180601
  Transmission Date: 20180711
  Serious: No
  Sender: FDA-Public Use
  Company Number: US-LEXICON PHARMACEUTICALS, INC-18-1606-00669

PATIENT
  Sex: Male

DRUGS (20)
  1. TELOTRISTAT ETHYL [Suspect]
     Active Substance: TELOTRISTAT ETHYL
     Route: 048
  2. PAROXETINE. [Concomitant]
     Active Substance: PAROXETINE
  3. ALLOPURINOL. [Concomitant]
     Active Substance: ALLOPURINOL
  4. NIACIN. [Concomitant]
     Active Substance: NIACIN
  5. MAGNESIUM [Concomitant]
     Active Substance: MAGNESIUM
  6. OPIUMTIN [Concomitant]
  7. ASPIR-LOW [Concomitant]
     Active Substance: ASPIRIN
  8. PREDNISOLONE. [Concomitant]
     Active Substance: PREDNISOLONE
  9. SANDOSTATIN [Concomitant]
     Active Substance: OCTREOTIDE ACETATE
  10. INDOMETHACIN. [Concomitant]
     Active Substance: INDOMETHACIN
  11. OCTREOTIDE ACETATE. [Concomitant]
     Active Substance: OCTREOTIDE ACETATE
  12. OMEPRAZOLE. [Concomitant]
     Active Substance: OMEPRAZOLE
  13. VITAMIN B12 [Concomitant]
     Active Substance: CYANOCOBALAMIN
  14. ROPINIROLE. [Concomitant]
     Active Substance: ROPINIROLE
  15. DICYCLOMINE [Concomitant]
     Active Substance: DICYCLOMINE HYDROCHLORIDE
  16. VOLTAREN [Concomitant]
     Active Substance: DICLOFENAC SODIUM
  17. AMLODIPINE [Concomitant]
     Active Substance: AMLODIPINE BESYLATE
  18. TELOTRISTAT ETHYL [Suspect]
     Active Substance: TELOTRISTAT ETHYL
     Indication: CARCINOID SYNDROME
     Route: 048
     Dates: start: 20171005
  19. KLOR-CON [Concomitant]
     Active Substance: POTASSIUM CHLORIDE
  20. SERTRALINE [Concomitant]
     Active Substance: SERTRALINE HYDROCHLORIDE

REACTIONS (1)
  - Constipation [Unknown]
